FAERS Safety Report 7644253-5 (Version None)
Quarter: 2011Q3

REPORT INFORMATION
  Report Type: 
  Country: None (occurrence: None)
  Receive Date: 20110729
  Receipt Date: 20110719
  Transmission Date: 20111222
  Serious: Yes (Hospitalization)
  Sender: FDA-Public Use
  Company Number: PHHY2011TW55778

PATIENT
  Sex: Male

DRUGS (1)
  1. NEORAL [Suspect]
     Indication: LIVER TRANSPLANT
     Dosage: 200 MG, UNK
     Route: 048
     Dates: start: 20100721

REACTIONS (12)
  - YELLOW SKIN [None]
  - DECREASED APPETITE [None]
  - VOMITING [None]
  - NAUSEA [None]
  - JAUNDICE [None]
  - ABDOMINAL DISCOMFORT [None]
  - HEPATITIS B [None]
  - RENAL FAILURE [None]
  - THROMBOCYTOPENIA [None]
  - WEIGHT DECREASED [None]
  - ASCITES [None]
  - REFRACTORY ANAEMIA [None]
